FAERS Safety Report 4538884-9 (Version None)
Quarter: 2004Q4

REPORT INFORMATION
  Report Type: 
  Country: None (occurrence: None)
  Receive Date: 20041227
  Receipt Date: 20040130
  Transmission Date: 20050328
  Serious: Yes (Hospitalization)
  Sender: FDA-Public Use
  Company Number: FR-ABBOTT-04P-056-0249160-00

PATIENT
  Age: 42 Year
  Sex: Female

DRUGS (4)
  1. LIPANTHYL [Suspect]
     Indication: HYPERCHOLESTEROLAEMIA
     Route: 048
     Dates: start: 20030901, end: 20031212
  2. BEROCCA [Suspect]
     Indication: DRUG USE FOR UNKNOWN INDICATION
     Dates: start: 20031101, end: 20031212
  3. CELECOXIB [Suspect]
     Indication: DRUG USE FOR UNKNOWN INDICATION
     Dates: start: 20031212, end: 20031212
  4. GLICLAZIDE [Suspect]
     Indication: DRUG USE FOR UNKNOWN INDICATION
     Dates: start: 20030901, end: 20031212

REACTIONS (5)
  - DERMATITIS BULLOUS [None]
  - ERYTHEMA [None]
  - LEUKOCYTOSIS [None]
  - NIKOLSKY'S SIGN [None]
  - PRURITUS [None]
